FAERS Safety Report 12355495 (Version 1)
Quarter: 2016Q2

REPORT INFORMATION
  Report Type: Report from Study
  Country: BR (occurrence: BR)
  Receive Date: 20160511
  Receipt Date: 20160511
  Transmission Date: 20160815
  Serious: Yes (Death)
  Sender: FDA-Public Use
  Company Number: PHHY2016BR064575

PATIENT
  Sex: Male

DRUGS (1)
  1. EXELON PATCH [Suspect]
     Active Substance: RIVASTIGMINE
     Indication: DEMENTIA ALZHEIMER^S TYPE
     Dosage: UNK
     Route: 062
     Dates: start: 201601

REACTIONS (5)
  - Renal impairment [Fatal]
  - Heart rate decreased [Fatal]
  - Hepatic cirrhosis [Fatal]
  - Weight decreased [Unknown]
  - Dyspnoea [Fatal]
